FAERS Safety Report 9738955 (Version 1)
Quarter: 2013Q4

REPORT INFORMATION
  Report Type: Spontaneous
  Country: GB (occurrence: GB)
  Receive Date: 20131209
  Receipt Date: 20131209
  Transmission Date: 20140711
  Serious: Yes (Disabling, Other)
  Sender: FDA-Public Use
  Company Number: GB-MICRO LABS LIMITED-BB2013-01180

PATIENT
  Age: 79 Year
  Sex: Female
  Weight: 82.55 kg

DRUGS (4)
  1. SIMVASTATIN [Suspect]
     Indication: CEREBROVASCULAR ACCIDENT
     Route: 048
     Dates: start: 20120630
  2. WARFARIN [Suspect]
     Indication: CEREBROVASCULAR ACCIDENT
     Route: 048
     Dates: start: 20120630
  3. BETA BLOCKERS, NOS [Suspect]
     Indication: CEREBROVASCULAR ACCIDENT
     Dosage: 2 OR 3 DOSAGE FORMS DAILY
     Route: 048
     Dates: start: 20120630
  4. PARACETAMOL [Concomitant]
     Indication: PRODUCT USED FOR UNKNOWN INDICATION
     Route: 065

REACTIONS (2)
  - Dizziness postural [Not Recovered/Not Resolved]
  - Gait disturbance [Not Recovered/Not Resolved]
